FAERS Safety Report 6368007-5 (Version None)
Quarter: 2009Q3

REPORT INFORMATION
  Report Type: 
  Country: None (occurrence: None)
  Receive Date: 20090922
  Receipt Date: 20090915
  Transmission Date: 20100115
  Serious: Yes (Hospitalization)
  Sender: FDA-Public Use
  Company Number: JP-JNJFOC-20090905068

PATIENT
  Age: 19 Year
  Sex: Female

DRUGS (1)
  1. LEVOFLOXACIN [Suspect]
     Indication: DIARRHOEA
     Route: 048
     Dates: start: 20090909, end: 20090909

REACTIONS (1)
  - ENTEROCOLITIS HAEMORRHAGIC [None]
